FAERS Safety Report 9210126 (Version 2)
Quarter: 2013Q3

REPORT INFORMATION
  Report Type: Report from Study
  Country: CA (occurrence: CA)
  Receive Date: 20130404
  Receipt Date: 20130701
  Transmission Date: 20140515
  Serious: Yes (Hospitalization, Other)
  Sender: FDA-Public Use
  Company Number: CA-JNJFOC-20130317700

PATIENT
  Sex: Male
  Weight: 108 kg

DRUGS (4)
  1. REMICADE [Suspect]
     Indication: CROHN^S DISEASE
     Route: 042
     Dates: start: 20121022
  2. REMICADE [Suspect]
     Indication: CROHN^S DISEASE
     Route: 042
     Dates: start: 2007
  3. SULFA [Concomitant]
     Indication: FISTULA
     Route: 065
  4. ALTACE [Concomitant]
     Indication: HYPERTENSION
     Route: 065

REACTIONS (2)
  - Ileostomy [Recovered/Resolved]
  - Fistula [Unknown]
